FAERS Safety Report 8478596-2 (Version None)
Quarter: 2012Q2

REPORT INFORMATION
  Report Type: 
  Country: None (occurrence: None)
  Receive Date: 20120402
  Receipt Date: 20110318
  Transmission Date: 20120825
  Serious: Yes (Disabling, Other)
  Sender: FDA-Public Use
  Company Number: 282559USA

PATIENT
  Age: 72 Year
  Sex: Female

DRUGS (2)
  1. ALENDRONATE SODIUM [Suspect]
  2. ALENDRONATE SODIUM [Suspect]

REACTIONS (3)
  - ARTHRALGIA [None]
  - PAIN IN EXTREMITY [None]
  - FEMUR FRACTURE [None]
